FAERS Safety Report 17298988 (Version 2)
Quarter: 2020Q1

REPORT INFORMATION
  Report Type: Spontaneous
  Country: TN (occurrence: TN)
  Receive Date: 20200121
  Receipt Date: 20200218
  Transmission Date: 20200409
  Serious: Yes (Hospitalization, Other)
  Sender: FDA-Public Use
  Company Number: TN-SA-2020SA013550

PATIENT
  Age: 75 Year
  Sex: Male

DRUGS (2)
  1. HEPARIN [Suspect]
     Active Substance: HEPARIN SODIUM
     Indication: ANTICOAGULANT THERAPY
  2. SALICYLIC ACID. [Suspect]
     Active Substance: SALICYLIC ACID
     Indication: ANTIPLATELET THERAPY
     Dosage: 100 MG, QD
     Route: 065

REACTIONS (18)
  - Neurological decompensation [Not Recovered/Not Resolved]
  - Cerebrovascular accident [Not Recovered/Not Resolved]
  - Acute abdomen [Unknown]
  - Haemodynamic instability [Not Recovered/Not Resolved]
  - Haemobilia [Unknown]
  - Peritoneal haemorrhage [Unknown]
  - Gallbladder rupture [Unknown]
  - Hypotension [Unknown]
  - Extravasation [Unknown]
  - Condition aggravated [Unknown]
  - Pupils unequal [Unknown]
  - Hypertension [Unknown]
  - Cholecystitis [Unknown]
  - Cholecystitis chronic [Unknown]
  - Haemorrhage [Unknown]
  - Tachypnoea [Unknown]
  - Haemoglobin decreased [Unknown]
  - Intestinal ischaemia [Unknown]
